FAERS Safety Report 7195664-6 (Version None)
Quarter: 2010Q4

REPORT INFORMATION
  Report Type: 
  Country: None (occurrence: None)
  Receive Date: 20101223
  Receipt Date: 20101006
  Transmission Date: 20110411
  Serious: No
  Sender: FDA-Public Use
  Company Number: US-AMGEN-KDL443063

PATIENT

DRUGS (1)
  1. ENBREL [Suspect]
     Indication: ANKYLOSING SPONDYLITIS
     Dosage: 50 MG, QWK
     Route: 058
     Dates: start: 20100929

REACTIONS (8)
  - ERYTHEMA [None]
  - EXCORIATION [None]
  - FALL [None]
  - FATIGUE [None]
  - NAUSEA [None]
  - RECTAL ABSCESS [None]
  - SCAB [None]
  - VOMITING [None]
